FAERS Safety Report 23153262 (Version 1)
Quarter: 2023Q4

REPORT INFORMATION
  Report Type: Spontaneous
  Country: CO (occurrence: CO)
  Receive Date: 20231107
  Receipt Date: 20231107
  Transmission Date: 20240109
  Serious: Yes (Hospitalization, Other)
  Sender: FDA-Public Use
  Company Number: CO-BAYER-2023A157876

PATIENT
  Age: 15 Year
  Sex: Female
  Weight: 49 kg

DRUGS (2)
  1. ULTRAVIST [Suspect]
     Active Substance: IOPROMIDE
     Indication: Contrast media allergy
     Dosage: 45 ML, ONCE
     Dates: start: 20231016, end: 20231016
  2. DIATRIZOATE MEGLUMINE\DIATRIZOATE SODIUM [Concomitant]
     Active Substance: DIATRIZOATE MEGLUMINE\DIATRIZOATE SODIUM
     Indication: Abdominal pain
     Dosage: 100 ML
     Dates: start: 20231016, end: 20231016

REACTIONS (19)
  - Altered state of consciousness [Recovered/Resolved]
  - Discomfort [None]
  - Lethargy [None]
  - Respiration abnormal [Recovered/Resolved]
  - Use of accessory respiratory muscles [Recovered/Resolved]
  - Oxygen saturation decreased [Recovered/Resolved]
  - Hypotonia [Recovered/Resolved]
  - Anaphylactic shock [None]
  - Dizziness [Recovered/Resolved]
  - Cough [Recovered/Resolved]
  - Cardiac failure [Recovered/Resolved]
  - Cyanosis [Recovered/Resolved]
  - Somnolence [Recovered/Resolved]
  - Heart rate increased [Recovered/Resolved]
  - Blood pressure decreased [Recovered/Resolved]
  - Coma scale abnormal [Recovered/Resolved]
  - Eyelid oedema [Recovered/Resolved]
  - Oedema mouth [Recovered/Resolved]
  - Wheezing [Recovered/Resolved]

NARRATIVE: CASE EVENT DATE: 20231016
